FAERS Safety Report 6171188-X (Version None)
Quarter: 2009Q2

REPORT INFORMATION
  Report Type: 
  Country: None (occurrence: None)
  Receive Date: 20090429
  Receipt Date: 20090420
  Transmission Date: 20091009
  Serious: Yes (Hospitalization, Other)
  Sender: FDA-Public Use
  Company Number: US-BIOGENIDEC-2009BI008138

PATIENT
  Sex: Female

DRUGS (23)
  1. TYSABRI [Suspect]
     Indication: MULTIPLE SCLEROSIS
     Route: 042
     Dates: start: 20070222
  2. TYSABRI [Suspect]
     Route: 042
     Dates: start: 20070222
  3. SYNTHROID [Concomitant]
     Indication: DRUG USE FOR UNKNOWN INDICATION
  4. DIAZEPAM [Concomitant]
     Indication: DRUG USE FOR UNKNOWN INDICATION
  5. NEXIUM [Concomitant]
     Indication: DRUG USE FOR UNKNOWN INDICATION
  6. DHEA [Concomitant]
     Indication: DRUG USE FOR UNKNOWN INDICATION
  7. PROGESTERONE [Concomitant]
     Indication: DRUG USE FOR UNKNOWN INDICATION
  8. ASPIRIN [Concomitant]
     Indication: DRUG USE FOR UNKNOWN INDICATION
  9. OPTIVE EYE DROPS [Concomitant]
     Indication: DRUG USE FOR UNKNOWN INDICATION
  10. VITAMIN B COMPLEX CAP [Concomitant]
     Indication: DRUG USE FOR UNKNOWN INDICATION
  11. VITAMIN E [Concomitant]
     Indication: DRUG USE FOR UNKNOWN INDICATION
  12. ASCORBIC ACID [Concomitant]
     Indication: DRUG USE FOR UNKNOWN INDICATION
  13. VITAMIN D [Concomitant]
     Indication: DRUG USE FOR UNKNOWN INDICATION
  14. FLAXSEED OIL [Concomitant]
     Indication: DRUG USE FOR UNKNOWN INDICATION
  15. FISH OIL [Concomitant]
     Indication: DRUG USE FOR UNKNOWN INDICATION
  16. COENZYME Q10 [Concomitant]
     Indication: DRUG USE FOR UNKNOWN INDICATION
  17. MSM TABLETS [Concomitant]
     Indication: DRUG USE FOR UNKNOWN INDICATION
  18. MAGNESIUM SULFATE [Concomitant]
     Indication: DRUG USE FOR UNKNOWN INDICATION
  19. CALCIUM [Concomitant]
     Indication: DRUG USE FOR UNKNOWN INDICATION
  20. ADRENAL RE-BUILDER SUPPLEMENTS [Concomitant]
     Indication: DRUG USE FOR UNKNOWN INDICATION
  21. NIASPAN [Concomitant]
     Indication: DRUG USE FOR UNKNOWN INDICATION
  22. DEXEDRINE [Concomitant]
     Indication: DRUG USE FOR UNKNOWN INDICATION
     Dates: end: 20090101
  23. PROZAC [Concomitant]
     Indication: AFFECTIVE DISORDER
     Dates: end: 20090101

REACTIONS (32)
  - APHASIA [None]
  - ASTHENIA [None]
  - BLOOD PRESSURE INCREASED [None]
  - COGNITIVE DISORDER [None]
  - COMMUNICATION DISORDER [None]
  - CONVULSION [None]
  - DEHYDRATION [None]
  - DIARRHOEA [None]
  - FATIGUE [None]
  - FEELING ABNORMAL [None]
  - GASTROENTERITIS VIRAL [None]
  - GENERAL SYMPTOM [None]
  - HEADACHE [None]
  - HEART RATE INCREASED [None]
  - HYPERLIPIDAEMIA [None]
  - HYPERSOMNIA [None]
  - HYPERTENSION [None]
  - HYPOPHAGIA [None]
  - HYPOTENSION [None]
  - MENTAL IMPAIRMENT [None]
  - MUSCULOSKELETAL PAIN [None]
  - NECK PAIN [None]
  - PAIN [None]
  - PHOTOSENSITIVITY REACTION [None]
  - RESPIRATORY TRACT INFECTION [None]
  - SLEEP DISORDER [None]
  - SOMNOLENCE [None]
  - SPEECH DISORDER [None]
  - STRESS [None]
  - UPPER RESPIRATORY TRACT INFECTION [None]
  - VARICES OESOPHAGEAL [None]
  - WEIGHT DECREASED [None]
